FAERS Safety Report 13575206 (Version 3)
Quarter: 2017Q4

REPORT INFORMATION
  Report Type: Report from Study
  Country: BR (occurrence: BR)
  Receive Date: 20170524
  Receipt Date: 20171023
  Transmission Date: 20180320
  Serious: Yes (Hospitalization)
  Sender: FDA-Public Use
  Company Number: BR-UCBSA-2017019962

PATIENT
  Age: 50 Year
  Sex: Female
  Weight: 53 kg

DRUGS (2)
  1. CERTOLIZUMAB PEGOL [Suspect]
     Active Substance: CERTOLIZUMAB PEGOL
     Indication: RHEUMATOID ARTHRITIS
     Dosage: 200 MG, EV 4 WEEKS
     Route: 058
     Dates: start: 201507, end: 2016
  2. CERTOLIZUMAB PEGOL [Suspect]
     Active Substance: CERTOLIZUMAB PEGOL
     Dosage: 200 MG, EV 4 WEEKS
     Route: 058
     Dates: start: 201612, end: 201701

REACTIONS (6)
  - Swelling [Recovered/Resolved]
  - Malaise [Unknown]
  - Hyperaesthesia [Not Recovered/Not Resolved]
  - Thyrotoxic crisis [Recovered/Resolved]
  - Erythema nodosum [Recovered/Resolved with Sequelae]
  - Skin discolouration [Recovered/Resolved]

NARRATIVE: CASE EVENT DATE: 201609
